FAERS Safety Report 17907544 (Version 2)
Quarter: 2021Q4

REPORT INFORMATION
  Report Type: Report from Study
  Country: DE (occurrence: DE)
  Receive Date: 20200617
  Receipt Date: 20211221
  Transmission Date: 20220303
  Serious: Yes (Hospitalization)
  Sender: FDA-Public Use
  Company Number: DE-CELGENE-DEU-20190805725

PATIENT
  Age: 71 Year
  Sex: Male
  Weight: 67.9 kg

DRUGS (2)
  1. ABRAXANE [Suspect]
     Active Substance: PACLITAXEL
     Indication: Non-small cell lung cancer
     Route: 041
     Dates: start: 20190405, end: 20190708
  2. CARBOPLATIN [Suspect]
     Active Substance: CARBOPLATIN
     Indication: Non-small cell lung cancer
     Dosage: 5 AUC
     Route: 065
     Dates: start: 20190405, end: 20190708

REACTIONS (1)
  - Non-small cell lung cancer metastatic [Recovered/Resolved]

NARRATIVE: CASE EVENT DATE: 20190814
